FAERS Safety Report 15728146 (Version 1)
Quarter: 2018Q4

REPORT INFORMATION
  Report Type: Spontaneous
  Country: CA (occurrence: CA)
  Receive Date: 20181217
  Receipt Date: 20181217
  Transmission Date: 20190205
  Serious: Yes (Congenital Anomaly, Other)
  Sender: FDA-Public Use
  Company Number: CA-APOTEX-2018AP027406

PATIENT

DRUGS (1)
  1. PAXIL [Suspect]
     Active Substance: PAROXETINE HYDROCHLORIDE
     Indication: DEPRESSION
     Dosage: 20 MG, UNK
     Route: 064

REACTIONS (4)
  - Tympanic membrane disorder [Unknown]
  - Foetal exposure during pregnancy [Unknown]
  - Deafness bilateral [Unknown]
  - Foot deformity [Unknown]

NARRATIVE: CASE EVENT DATE: 20040305
